FAERS Safety Report 6719003-7 (Version None)
Quarter: 2010Q2

REPORT INFORMATION
  Report Type: 
  Country: None (occurrence: None)
  Receive Date: 20100507
  Receipt Date: 20100419
  Transmission Date: 20101027
  Serious: Yes (Other)
  Sender: FDA-Public Use
  Company Number: 20100179

PATIENT
  Age: 53 Year
  Sex: Male

DRUGS (4)
  1. VASOPRESSIN INJECTION,                     USP (0410-10) 20 UNITS/ML [Suspect]
     Indication: SEPTIC SHOCK
     Dosage: 0.01 - 0.10 U/MIN INTRAVENOUS
     Route: 042
  2. VALPROIC ACID [Concomitant]
  3. AMANTADINE HCL [Concomitant]
  4. SERTRALINE HCL [Concomitant]

REACTIONS (4)
  - HYPERNATRAEMIA [None]
  - HYPONATRAEMIA [None]
  - NO THERAPEUTIC RESPONSE [None]
  - URINE OUTPUT DECREASED [None]
